FAERS Safety Report 23411829 (Version 2)
Quarter: 2025Q1

REPORT INFORMATION
  Report Type: Spontaneous
  Country: US (occurrence: US)
  Receive Date: 20240117
  Receipt Date: 20250115
  Transmission Date: 20250409
  Serious: No
  Sender: SK LIFE SCIENCE
  Company Number: US-SK LIFE SCIENCE, INC-SKPVG-2023-000855

PATIENT

DRUGS (3)
  1. XCOPRI [Suspect]
     Active Substance: CENOBAMATE
     Indication: Epilepsy
     Route: 048
     Dates: start: 201703
  2. XCOPRI [Suspect]
     Active Substance: CENOBAMATE
     Indication: Seizure
     Dosage: 250MG DAILY, A 200MG TABLET AND A 50MG TABLET EVERY EVENING BEFORE GOING TO BED
     Route: 048
     Dates: end: 20230723
  3. XCOPRI [Suspect]
     Active Substance: CENOBAMATE
     Dosage: 250MG DAILY, A 200MG TABLET AND A 50MG TABLET EVERY EVENING BEFORE GOING TO BED
     Route: 048
     Dates: end: 20240126

REACTIONS (1)
  - Product dose omission issue [Recovered/Resolved]

NARRATIVE: CASE EVENT DATE: 20230724
